FAERS Safety Report 17881236 (Version 1)
Quarter: 2020Q2

REPORT INFORMATION
  Report Type: Spontaneous
  Country: US (occurrence: US)
  Receive Date: 20200610
  Receipt Date: 20200610
  Transmission Date: 20200714
  Serious: No
  Sender: FDA-Public Use
  Company Number: None

PATIENT
  Age: 73 Year
  Sex: Male
  Weight: 79.1 kg

DRUGS (12)
  1. FUROSEMIDE. [Concomitant]
     Active Substance: FUROSEMIDE
     Dates: start: 20200605, end: 20200605
  2. LR INFUSION [Concomitant]
     Dates: start: 20200602, end: 20200602
  3. AZITHROMYCIN ANHYDROUS. [Concomitant]
     Active Substance: AZITHROMYCIN ANHYDROUS
     Dates: start: 20200601, end: 20200605
  4. CEFTRIAXONE. [Concomitant]
     Active Substance: CEFTRIAXONE
     Dates: start: 20200601, end: 20200605
  5. HEPARIN [Concomitant]
     Active Substance: HEPARIN SODIUM
     Dates: start: 20200601
  6. MELATONIN [Concomitant]
     Active Substance: MELATONIN
     Dates: start: 20200604, end: 20200605
  7. ATORVASTATIN [Concomitant]
     Active Substance: ATORVASTATIN
     Dates: start: 20200601
  8. NS BOLUS [Concomitant]
     Dates: start: 20200602, end: 20200606
  9. METHYLIPREDNISOLONE SODIUM SUCCINATE [Concomitant]
     Dates: start: 20200601, end: 20200607
  10. REMDESIVIR. [Suspect]
     Active Substance: REMDESIVIR
     Indication: COVID-19 PNEUMONIA
     Route: 042
     Dates: start: 20200602, end: 20200605
  11. POTASSIUM CHLORIDE. [Concomitant]
     Active Substance: POTASSIUM CHLORIDE
     Dates: start: 20200602, end: 20200605
  12. LACTOBACILLUS RHAMNOSUS [Concomitant]
     Active Substance: LACTOBACILLUS RHAMNOSUS
     Dates: start: 20200603

REACTIONS (2)
  - Device kink [None]
  - Product dose omission [None]

NARRATIVE: CASE EVENT DATE: 20200606
